FAERS Safety Report 4343014-2 (Version None)
Quarter: 2004Q1

REPORT INFORMATION
  Report Type: 
  Country: None (occurrence: None)
  Receive Date: 20040325
  Receipt Date: 20040202
  Transmission Date: 20041129
  Serious: No
  Sender: FDA-Public Use
  Company Number: USA030127451

PATIENT
  Age: 79 Year
  Sex: Female
  Weight: 46 kg

DRUGS (8)
  1. FORTEO [Suspect]
     Indication: OSTEOPOROSIS
     Dosage: 20 UG/DAY
     Dates: start: 20021212
  2. ACYCLOVIR [Concomitant]
  3. AMITRIPTYLINE HCL [Concomitant]
  4. ATENOLOL [Concomitant]
  5. FOSAMAX [Concomitant]
  6. HYZAAR [Concomitant]
  7. NEXIUM [Concomitant]
  8. RANITIDINE [Concomitant]

REACTIONS (3)
  - ACCIDENTAL NEEDLE STICK [None]
  - EYE SWELLING [None]
  - PRURITUS [None]
